FAERS Safety Report 7900907-4 (Version None)
Quarter: 2011Q4

REPORT INFORMATION
  Report Type: 
  Country: None (occurrence: None)
  Receive Date: 20111108
  Receipt Date: 20111025
  Transmission Date: 20120403
  Serious: Yes (Hospitalization)
  Sender: FDA-Public Use
  Company Number: AU-ELI_LILLY_AND_COMPANY-AU201110006278

PATIENT
  Sex: Male

DRUGS (5)
  1. CRESTOR [Concomitant]
  2. DIAMICRON [Concomitant]
     Dosage: UNK
  3. CYMBALTA [Suspect]
     Dosage: UNK, UNKNOWN
  4. CYMBALTA [Suspect]
     Indication: DEPRESSION
     Dosage: 60 MG, UNKNOWN
     Dates: start: 20110701
  5. METFORMIN HCL [Concomitant]

REACTIONS (2)
  - EMOTIONAL DISORDER [None]
  - CONVERSION DISORDER [None]
